FAERS Safety Report 25119927 (Version 2)
Quarter: 2025Q1

REPORT INFORMATION
  Report Type: Spontaneous
  Country: AU (occurrence: AU)
  Receive Date: 20250325
  Receipt Date: 20250327
  Transmission Date: 20250408
  Serious: Yes (Other)
  Sender: BIOVITRUM
  Company Number: AU-BIOVITRUM-2025-AU-003963

PATIENT
  Age: 5 Decade
  Sex: Male

DRUGS (2)
  1. ANAKINRA [Suspect]
     Active Substance: ANAKINRA
     Indication: Haemophagocytic lymphohistiocytosis
     Dates: start: 20250312
  2. RUXOLITINIB [Suspect]
     Active Substance: RUXOLITINIB
     Indication: Product used for unknown indication

REACTIONS (6)
  - Pneumonitis [Recovering/Resolving]
  - Respiratory failure [Unknown]
  - Off label use [Not Recovered/Not Resolved]
  - Condition aggravated [Unknown]
  - Hyperferritinaemia [Not Recovered/Not Resolved]
  - Liver function test abnormal [Not Recovered/Not Resolved]

NARRATIVE: CASE EVENT DATE: 20250312
